FAERS Safety Report 4936859-9 (Version None)
Quarter: 2006Q1

REPORT INFORMATION
  Report Type: 
  Country: None (occurrence: None)
  Receive Date: 20060302
  Receipt Date: 20060217
  Transmission Date: 20060701
  Serious: Yes (Death)
  Sender: FDA-Public Use
  Company Number: 2006-00381

PATIENT
  Age: 48 Year
  Sex: Male

DRUGS (2)
  1. VELCADE [Suspect]
     Indication: MULTIPLE MYELOMA
     Dates: start: 20030619
  2. DEXAMETHASONE TAB [Concomitant]

REACTIONS (4)
  - DISEASE PROGRESSION [None]
  - ENDOCARDITIS [None]
  - MULTIPLE MYELOMA [None]
  - SEPSIS [None]
